FAERS Safety Report 5174728-2 (Version None)
Quarter: 2006Q4

REPORT INFORMATION
  Report Type: 
  Country: None (occurrence: None)
  Receive Date: 20061206
  Receipt Date: 20061123
  Transmission Date: 20070319
  Serious: Yes (Hospitalization, Other)
  Sender: FDA-Public Use
  Company Number: 2006144651

PATIENT
  Age: 16 Year
  Sex: Female

DRUGS (4)
  1. VFEND [Suspect]
     Indication: FUNGAL INFECTION
     Dosage: ORAL
     Route: 048
  2. VFEND [Suspect]
     Indication: FUNGAL INFECTION
     Dosage: INTRAVENOUS
     Route: 042
  3. AMBISOME [Concomitant]
  4. CHEMOTHERAPY NOS (CHEMOTHERAPY NOS) [Concomitant]

REACTIONS (5)
  - APALLIC SYNDROME [None]
  - DEPRESSION [None]
  - FATIGUE [None]
  - NAUSEA [None]
  - SOMNOLENCE [None]
